FAERS Safety Report 9828899 (Version 2)
Quarter: 2014Q1

REPORT INFORMATION
  Report Type: Report from Study
  Country: JP (occurrence: JP)
  Receive Date: 20140118
  Receipt Date: 20140118
  Transmission Date: 20141002
  Serious: Yes (Hospitalization, Other)
  Sender: FDA-Public Use
  Company Number: JP-ABBVIE-12P-087-0993192-00

PATIENT
  Age: 71 Year
  Sex: Male
  Weight: 43 kg

DRUGS (14)
  1. HUMIRA [Suspect]
     Indication: RHEUMATOID ARTHRITIS
     Route: 058
     Dates: start: 20120730, end: 20121001
  2. METHOTREXATE SODIUM [Concomitant]
     Indication: RHEUMATOID ARTHRITIS
     Dates: start: 200907, end: 20121001
  3. PREDNISOLONE [Concomitant]
     Indication: RHEUMATOID ARTHRITIS
     Route: 048
     Dates: start: 20120910, end: 20121107
  4. PREDNISOLONE [Concomitant]
     Dates: start: 20120829, end: 20120909
  5. PREDNISOLONE [Concomitant]
     Route: 048
     Dates: end: 20120828
  6. PREDNISOLONE [Concomitant]
     Dates: start: 200910
  7. BUCILLAMINE [Concomitant]
     Indication: RHEUMATOID ARTHRITIS
     Dates: start: 200910, end: 20121029
  8. MECOBALAMIN [Concomitant]
     Indication: LUMBAR SPINAL STENOSIS
     Route: 048
     Dates: start: 20120829
  9. MECOBALAMIN [Concomitant]
     Dates: start: 201209
  10. FOLIC ACID [Concomitant]
     Indication: PROPHYLAXIS
     Route: 048
     Dates: end: 20121107
  11. FOLIC ACID [Concomitant]
     Dates: start: 2009
  12. ETODOLAC [Concomitant]
     Indication: RHEUMATOID ARTHRITIS
     Route: 048
  13. ETODOLAC [Concomitant]
     Dates: start: 2009
  14. FAMOTIDINE [Concomitant]
     Indication: PROPHYLAXIS
     Route: 048
     Dates: start: 2009

REACTIONS (3)
  - Tendon rupture [Unknown]
  - Organising pneumonia [Recovered/Resolved with Sequelae]
  - Tendon rupture [Unknown]
